FAERS Safety Report 23088441 (Version 2)
Quarter: 2023Q4

REPORT INFORMATION
  Report Type: Spontaneous
  Country: MX (occurrence: MX)
  Receive Date: 20231020
  Receipt Date: 20231025
  Transmission Date: 20240109
  Serious: Yes (Hospitalization, Other)
  Sender: FDA-Public Use
  Company Number: MX-BoehringerIngelheim-2023-BI-267993

PATIENT
  Age: 79 Year
  Sex: Female

DRUGS (2)
  1. OFEV [Suspect]
     Active Substance: NINTEDANIB
     Indication: Systemic sclerosis pulmonary
     Route: 048
     Dates: start: 20231002
  2. OFEV [Suspect]
     Active Substance: NINTEDANIB

REACTIONS (4)
  - Chest pain [Unknown]
  - Pain in extremity [Unknown]
  - Pulmonary thrombosis [Unknown]
  - Diarrhoea [Unknown]

NARRATIVE: CASE EVENT DATE: 20231012
